FAERS Safety Report 8672616 (Version 2)
Quarter: 2013Q4

REPORT INFORMATION
  Report Type: Spontaneous
  Country: US (occurrence: US)
  Receive Date: 20120719
  Receipt Date: 20131101
  Transmission Date: 20140711
  Serious: No
  Sender: FDA-Public Use
  Company Number: US-009507513-1205USA05355

PATIENT
  Age: 69 Year
  Sex: Female
  Weight: 83.3 kg

DRUGS (5)
  1. SINGULAIR [Suspect]
     Dosage: 10 MG, QD
     Route: 048
     Dates: start: 20120518, end: 20120522
  2. PRINIVIL [Concomitant]
  3. PREDNISONE [Concomitant]
     Indication: EXTERNAL EAR INFLAMMATION
     Dosage: 50 MG, UNK
     Route: 048
     Dates: start: 20120518, end: 20120520
  4. PREDNISONE [Concomitant]
     Indication: MIDDLE EAR INFLAMMATION
  5. PREDNISONE [Concomitant]
     Indication: INNER EAR INFLAMMATION

REACTIONS (4)
  - Performance status decreased [Recovered/Resolved]
  - Lethargy [Unknown]
  - Laziness [Unknown]
  - Asthenia [Unknown]
